FAERS Safety Report 16657199 (Version 4)
Quarter: 2019Q4

REPORT INFORMATION
  Report Type: Report from Study
  Country: None (occurrence: US)
  Receive Date: 20190801
  Receipt Date: 20191022
  Transmission Date: 20200122
  Serious: Yes (Other)
  Sender: FDA-Public Use
  Company Number: US-ABBVIE-19K-163-2866362-00

PATIENT
  Age: 52 Year
  Sex: Female
  Weight: 118.49 kg

DRUGS (3)
  1. HUMIRA [Suspect]
     Active Substance: ADALIMUMAB
     Indication: ANKYLOSING SPONDYLITIS
     Route: 058
     Dates: start: 2018, end: 20190806
  2. MELOXICAM. [Concomitant]
     Active Substance: MELOXICAM
     Indication: ARTHRITIS
     Route: 048
  3. HUMIRA [Suspect]
     Active Substance: ADALIMUMAB
     Indication: PSORIATIC ARTHROPATHY

REACTIONS (9)
  - Drug ineffective [Unknown]
  - Balance disorder [Unknown]
  - Knee arthroplasty [Recovering/Resolving]
  - Dehydration [Recovering/Resolving]
  - Anaemia [Not Recovered/Not Resolved]
  - Heart rate increased [Not Recovered/Not Resolved]
  - Heat stroke [Recovering/Resolving]
  - Arthritis [Unknown]
  - Vertigo [Unknown]

NARRATIVE: CASE EVENT DATE: 20190923
